FAERS Safety Report 23729463 (Version 1)
Quarter: 2024Q2

REPORT INFORMATION
  Report Type: Other
  Country: US (occurrence: None)
  Receive Date: 20240410
  Receipt Date: 20240410
  Transmission Date: 20240716
  Serious: Yes (Death)
  Sender: FDA-Public Use
  Company Number: US-ROCHE-3541869

PATIENT
  Age: 53 Year
  Sex: Female

DRUGS (12)
  1. POLIVY [Suspect]
     Active Substance: POLATUZUMAB VEDOTIN-PIIQ
     Indication: Follicular lymphoma
     Dosage: INFUSE 177. 6 MG INTRAVENOUSLY EVERY 21 DAYS
     Route: 042
  2. POLIVY [Suspect]
     Active Substance: POLATUZUMAB VEDOTIN-PIIQ
     Indication: Diffuse large B-cell lymphoma
     Dosage: INFUSE 177.6 MG INTRAVENOUSLY EVERY 21 DAYS
     Route: 042
  3. TOPOSAR [Concomitant]
     Active Substance: ETOPOSIDE
  4. NEULASTA [Concomitant]
     Active Substance: PEGFILGRASTIM
  5. MESNEX [Concomitant]
     Active Substance: MESNA
  6. ACYCLOVIR [Concomitant]
     Active Substance: ACYCLOVIR
  7. WELLBUTRIN XL [Concomitant]
     Active Substance: BUPROPION HYDROCHLORIDE
  8. CLONAZEPAM [Concomitant]
     Active Substance: CLONAZEPAM
  9. MIRTAZAPINE [Concomitant]
     Active Substance: MIRTAZAPINE
  10. OMEPRAZOLE [Concomitant]
     Active Substance: OMEPRAZOLE
  11. COMPAZINE [Concomitant]
     Active Substance: PROCHLORPERAZINE MALEATE
  12. BACTRIM [Concomitant]
     Active Substance: SULFAMETHOXAZOLE\TRIMETHOPRIM

REACTIONS (1)
  - Death [Fatal]
